FAERS Safety Report 4326753-9 (Version None)
Quarter: 2004Q1

REPORT INFORMATION
  Report Type: 
  Country: None (occurrence: None)
  Receive Date: 20040322
  Receipt Date: 20031230
  Transmission Date: 20041129
  Serious: No
  Sender: FDA-Public Use
  Company Number: US-JNJFOC-20040100083

PATIENT
  Age: 20 Year
  Sex: Female
  Weight: 61.2356 kg

DRUGS (2)
  1. ORTHO TRI-CYCLEN LO [Suspect]
     Dosage: 1 DOSE (S), 1 IN 1 DAY, ORAL
     Route: 048
  2. COLD MEDICATIONS (COLD CAPSULES) [Concomitant]

REACTIONS (2)
  - DRUG EXPOSURE DURING PREGNANCY [None]
  - PREGNANCY ON ORAL CONTRACEPTIVE [None]
